FAERS Safety Report 18618236 (Version 1)
Quarter: 2020Q4

REPORT INFORMATION
  Report Type: Report from Study
  Country: US (occurrence: US)
  Receive Date: 20201215
  Receipt Date: 20201215
  Transmission Date: 20210114
  Serious: Yes (Other)
  Sender: FDA-Public Use
  Company Number: US-CHIASMA-2020CHI00025

PATIENT
  Sex: Male
  Weight: 88.44 kg

DRUGS (1)
  1. MYCAPSSA [Suspect]
     Active Substance: OCTREOTIDE
     Indication: ACROMEGALY
     Dosage: UNK
     Route: 048

REACTIONS (6)
  - Major depression [Unknown]
  - Product dose omission issue [Unknown]
  - Weight abnormal [Unknown]
  - Unevaluable event [Unknown]
  - Memory impairment [Unknown]
  - Limb deformity [Unknown]
